FAERS Safety Report 7789837-9 (Version None)
Quarter: 2011Q3

REPORT INFORMATION
  Report Type: 
  Country: None (occurrence: None)
  Receive Date: 20110930
  Receipt Date: 20110926
  Transmission Date: 20111222
  Serious: Yes (Hospitalization)
  Sender: FDA-Public Use
  Company Number: TR-BRISTOL-MYERS SQUIBB COMPANY-16096570

PATIENT
  Age: 16 Year
  Sex: Female

DRUGS (3)
  1. DIGOXIN [Suspect]
     Dosage: 1DF;20 TABS.EACH TABS CONTAINS 0.25MG (EQUIVALENT TO 0.1MG/KG)
     Route: 048
  2. PROPAFENONE HCL [Suspect]
     Dosage: 1DF;15 TABS.EACH TAB CONTAINS 300MG (EQUIVALENT TO 90MG/KG)
     Route: 048
  3. WARFARIN SODIUM [Suspect]
     Dosage: 32 TABS EACH TABS CONTAINS 5MG (EQUIVALENT TO 3.2MG/KG)
     Route: 065

REACTIONS (3)
  - SINUS BRADYCARDIA [None]
  - OVERDOSE [None]
  - HYPOTENSION [None]
